FAERS Safety Report 13691691 (Version 1)
Quarter: 2017Q2

REPORT INFORMATION
  Report Type: Spontaneous
  Country: US (occurrence: US)
  Receive Date: 20170626
  Receipt Date: 20170626
  Transmission Date: 20170830
  Serious: No
  Sender: FDA-Public Use
  Company Number: US-ACTELION-A-NJ2017-153283

PATIENT
  Age: 53 Year
  Sex: Male

DRUGS (8)
  1. OPSUMIT [Suspect]
     Active Substance: MACITENTAN
     Indication: PULMONARY ARTERIAL HYPERTENSION
     Dosage: 10 MG, QD
     Route: 048
     Dates: start: 20150401
  2. POTASSIUM [Concomitant]
     Active Substance: POTASSIUM
  3. CARVEDILOL. [Concomitant]
     Active Substance: CARVEDILOL
  4. LOSARTAN. [Concomitant]
     Active Substance: LOSARTAN
  5. LASIX [Concomitant]
     Active Substance: FUROSEMIDE
  6. WARFARIN [Concomitant]
     Active Substance: WARFARIN
  7. ORENITRAM [Concomitant]
     Active Substance: TREPROSTINIL
     Dosage: 6.25 MG, UNK
     Dates: start: 20170311
  8. ADCIRCA [Concomitant]
     Active Substance: TADALAFIL

REACTIONS (5)
  - Diarrhoea [Not Recovered/Not Resolved]
  - Pain in jaw [Not Recovered/Not Resolved]
  - Headache [Not Recovered/Not Resolved]
  - Abdominal distension [Not Recovered/Not Resolved]
  - Flushing [Not Recovered/Not Resolved]

NARRATIVE: CASE EVENT DATE: 20170427
